FAERS Safety Report 11473521 (Version 1)
Quarter: 2015Q3

REPORT INFORMATION
  Report Type: Spontaneous
  Country: US (occurrence: US)
  Receive Date: 20150908
  Receipt Date: 20150908
  Transmission Date: 20151125
  Serious: Yes (Other)
  Sender: FDA-Public Use
  Company Number: US-JAZZ-2014-US-015500

PATIENT
  Age: 8 Year
  Sex: Female
  Weight: 29.48 kg

DRUGS (4)
  1. XYREM [Suspect]
     Active Substance: SODIUM OXYBATE
     Indication: CATAPLEXY
     Dosage: 3 G, BID
     Route: 048
     Dates: start: 20141118
  2. XYREM [Suspect]
     Active Substance: SODIUM OXYBATE
     Dosage: DOSE ADJUSTMENTS
     Route: 048
  3. XYREM [Suspect]
     Active Substance: SODIUM OXYBATE
     Dosage: 3.25 G, BID
     Route: 048
  4. XYREM [Suspect]
     Active Substance: SODIUM OXYBATE
     Indication: NARCOLEPSY
     Dosage: 2.25 G, BID
     Route: 048
     Dates: start: 201411, end: 201411

REACTIONS (9)
  - Loss of consciousness [Recovered/Resolved]
  - Weight decreased [Not Recovered/Not Resolved]
  - Secretion discharge [Not Recovered/Not Resolved]
  - Abdominal pain upper [Recovered/Resolved]
  - Muscle tightness [Unknown]
  - Somnolence [Unknown]
  - Nausea [Recovered/Resolved]
  - Dyskinesia [Unknown]
  - Retching [Unknown]

NARRATIVE: CASE EVENT DATE: 201411
